FAERS Safety Report 10169152 (Version 1)
Quarter: 2014Q2

REPORT INFORMATION
  Report Type: Spontaneous
  Country: US (occurrence: None)
  Receive Date: 20140509
  Receipt Date: 20140509
  Transmission Date: 20141212
  Serious: Yes (Hospitalization)
  Sender: FDA-Public Use
  Company Number: UTC-048312

PATIENT
  Age: 56 Year
  Sex: Male
  Weight: 83.91 kg

DRUGS (1)
  1. REMODULIN [Suspect]
     Indication: PULMONARY ARTERIAL HYPERTENSION
     Dosage: 0.0985 UG/LG 1 IN 1 MIN
     Route: 058
     Dates: start: 20080911

REACTIONS (1)
  - Lung transplant [None]
